FAERS Safety Report 5986417-2 (Version None)
Quarter: 2008Q4

REPORT INFORMATION
  Report Type: 
  Country: None (occurrence: None)
  Receive Date: 20081203
  Receipt Date: 20081123
  Transmission Date: 20090506
  Serious: Yes (Hospitalization, Other)
  Sender: FDA-Public Use
  Company Number: 2008AP002790

PATIENT
  Age: 88 Year
  Sex: Male

DRUGS (7)
  1. SERTRALINE HYDROCHLORIDE [Suspect]
     Indication: DEPRESSION
     Dosage: 50 MG; QD; PO
     Route: 048
     Dates: start: 20071111, end: 20081014
  2. ACETYLSLICYLIC ACID (ACETYLSALICYLIC ACID) [Concomitant]
  3. FOLIC ACID [Concomitant]
  4. PERINDOPRIL ERBUMINE [Concomitant]
  5. SERTRALINE HYDROCHLORIDE [Concomitant]
  6. FLUVOXAMINE MALEATE [Concomitant]
  7. PERINDOPRIL ERBUMINE/ INDAPAMIDE (PERINDOPRIL ERBUMINE/ INDAPAMIDE) [Concomitant]

REACTIONS (53)
  - ABDOMINAL PAIN UPPER [None]
  - ACTIVITIES OF DAILY LIVING IMPAIRED [None]
  - ANALGESIC DRUG LEVEL DECREASED [None]
  - ANOREXIA [None]
  - BLOOD ALBUMIN DECREASED [None]
  - BLOOD CHOLESTEROL DECREASED [None]
  - BLOOD SODIUM DECREASED [None]
  - BLOOD TEST ABNORMAL [None]
  - CALCIUM DEFICIENCY [None]
  - CHILLS [None]
  - CONJUNCTIVITIS [None]
  - CONSTIPATION [None]
  - CONVULSION [None]
  - DEHYDRATION [None]
  - DIPLOPIA [None]
  - DIZZINESS [None]
  - DRUG INTERACTION [None]
  - DYSPHAGIA [None]
  - DYSPNOEA [None]
  - FATIGUE [None]
  - FEELING ABNORMAL [None]
  - GASTROINTESTINAL DISORDER [None]
  - GLOBULINS INCREASED [None]
  - HEART RATE DECREASED [None]
  - HEART RATE INCREASED [None]
  - HEART RATE IRREGULAR [None]
  - HOT FLUSH [None]
  - HYPERSOMNIA [None]
  - HYPERTHERMIA [None]
  - HYPOTENSION [None]
  - HYPOTHERMIA [None]
  - JOINT SWELLING [None]
  - LYMPHOMA [None]
  - MACULAR DEGENERATION [None]
  - MALAISE [None]
  - MUSCULAR WEAKNESS [None]
  - NAUSEA [None]
  - NO THERAPEUTIC RESPONSE [None]
  - OCULAR RETROBULBAR HAEMORRHAGE [None]
  - OEDEMA PERIPHERAL [None]
  - ORAL CANDIDIASIS [None]
  - PHLEBITIS [None]
  - RASH [None]
  - SKIN DISCOLOURATION [None]
  - SYNCOPE [None]
  - THYROID DISORDER [None]
  - TRANSIENT ISCHAEMIC ATTACK [None]
  - URINARY INCONTINENCE [None]
  - URINE ANALYSIS ABNORMAL [None]
  - VISION BLURRED [None]
  - VISUAL IMPAIRMENT [None]
  - VOMITING [None]
  - YAWNING [None]
